FAERS Safety Report 23336178 (Version 1)
Quarter: 2023Q4

REPORT INFORMATION
  Report Type: Report from Study
  Country: US (occurrence: US)
  Receive Date: 20231225
  Receipt Date: 20231225
  Transmission Date: 20240109
  Serious: Yes (Other)
  Sender: FDA-Public Use
  Company Number: US-002147023-NVSC2022US304504

PATIENT
  Sex: Female

DRUGS (2)
  1. ILARIS [Suspect]
     Active Substance: CANAKINUMAB
     Indication: Pyrexia
     Dosage: 300 MG Q21 DAYS
     Route: 058
     Dates: start: 20190404
  2. ILARIS [Suspect]
     Active Substance: CANAKINUMAB
     Dosage: 300 MG, Q3W
     Route: 058
     Dates: start: 20220922

REACTIONS (2)
  - Abortion spontaneous [Unknown]
  - Maternal exposure during pregnancy [Unknown]
